FAERS Safety Report 10911010 (Version 10)
Quarter: 2020Q3

REPORT INFORMATION
  Report Type: Report from Study
  Country: CA (occurrence: CA)
  Receive Date: 20150312
  Receipt Date: 20200723
  Transmission Date: 20201102
  Serious: Yes (Hospitalization, Other)
  Sender: FDA-Public Use
  Company Number: PHHY2012CA069532

PATIENT
  Age: 65 Year
  Sex: Male
  Weight: 116.55 kg

DRUGS (4)
  1. SANDOSTATIN LAR DEPOT [Suspect]
     Active Substance: OCTREOTIDE ACETATE
  2. ATENOLOL. [Concomitant]
     Active Substance: ATENOLOL
     Indication: PRODUCT USED FOR UNKNOWN INDICATION
     Dosage: 100 MG, QD
     Route: 065
  3. SANDOSTATIN LAR DEPOT [Suspect]
     Active Substance: OCTREOTIDE ACETATE
  4. SANDOSTATIN LAR DEPOT [Suspect]
     Active Substance: OCTREOTIDE ACETATE
     Indication: CARCINOID TUMOUR
     Dosage: 40 MG, QMO
     Route: 030
     Dates: start: 20090401

REACTIONS (29)
  - Pulmonary embolism [Unknown]
  - Dyspnoea [Not Recovered/Not Resolved]
  - Recurrent cancer [Unknown]
  - Blood pressure diastolic decreased [Unknown]
  - Anxiety [Unknown]
  - Gastrointestinal disorder [Unknown]
  - Arthralgia [Not Recovered/Not Resolved]
  - Pain [Unknown]
  - Fall [Unknown]
  - Weight decreased [Unknown]
  - Lung disorder [Not Recovered/Not Resolved]
  - Pain in extremity [Recovered/Resolved]
  - Photopsia [Unknown]
  - Myalgia [Unknown]
  - Rectal haemorrhage [Unknown]
  - Malignant neoplasm progression [Unknown]
  - Vision blurred [Unknown]
  - Chills [Unknown]
  - Blood cholesterol increased [Unknown]
  - Hordeolum [Recovering/Resolving]
  - Gait disturbance [Recovering/Resolving]
  - Hepatic lesion [Unknown]
  - Neoplasm progression [Unknown]
  - Injury [Unknown]
  - Blood pressure systolic increased [Unknown]
  - Blood glucose increased [Unknown]
  - Contusion [Unknown]
  - Bone erosion [Recovering/Resolving]
  - Cystitis [Unknown]

NARRATIVE: CASE EVENT DATE: 20130411
